FAERS Safety Report 7454479-1 (Version None)
Quarter: 2011Q2

REPORT INFORMATION
  Report Type: 
  Country: None (occurrence: None)
  Receive Date: 20110425
  Receipt Date: 20110411
  Transmission Date: 20111010
  Serious: Yes (Other)
  Sender: FDA-Public Use
  Company Number: 030958

PATIENT
  Sex: Female
  Weight: 53 kg

DRUGS (4)
  1. CIMZIA [Suspect]
     Indication: CROHN'S DISEASE
     Dosage: SEE IMAGE
     Route: 058
     Dates: start: 20040629, end: 20041018
  2. CIMZIA [Suspect]
     Indication: CROHN'S DISEASE
     Dosage: SEE IMAGE
     Route: 058
     Dates: start: 20041116
  3. CIMZIA [Suspect]
     Indication: CROHN'S DISEASE
     Dosage: SEE IMAGE
     Route: 058
     Dates: start: 20040504, end: 20040601
  4. IMURAN [Concomitant]

REACTIONS (7)
  - HEPATIC VEIN DILATATION [None]
  - HEPATIC CIRRHOSIS [None]
  - UTERINE LEIOMYOMA [None]
  - VENTRICULAR EXTRASYSTOLES [None]
  - VEIN DISORDER [None]
  - HEPATOSPLENOMEGALY [None]
  - BRONCHIECTASIS [None]
